FAERS Safety Report 5631797-0 (Version None)
Quarter: 2008Q1

REPORT INFORMATION
  Report Type: 
  Country: None (occurrence: None)
  Receive Date: 20080220
  Receipt Date: 20080212
  Transmission Date: 20080703
  Serious: Yes (Other)
  Sender: FDA-Public Use
  Company Number: PHHY2008JP01626

PATIENT
  Age: 77 Year
  Sex: Male

DRUGS (1)
  1. PARLODEL [Suspect]
     Indication: PARKINSON'S DISEASE
     Dosage: 100 MG/DAY
     Route: 048
     Dates: end: 20080101

REACTIONS (1)
  - NEUROLEPTIC MALIGNANT SYNDROME [None]
